FAERS Safety Report 24137651 (Version 1)
Quarter: 2024Q3

REPORT INFORMATION
  Report Type: Spontaneous
  Country: US (occurrence: None)
  Receive Date: 20240724
  Receipt Date: 20240724
  Transmission Date: 20241017
  Serious: Yes (Hospitalization)
  Sender: Public
  Company Number: None

PATIENT
  Age: 85 Year
  Sex: Female

DRUGS (12)
  1. PRALUENT [Suspect]
     Active Substance: ALIROCUMAB
     Indication: Hypercholesterolaemia
     Dosage: FREQUENCY : EVERY OTHER WEEK;?
     Route: 058
     Dates: start: 20230411
  2. Synthroid 0.137 mg and Wartarin 10 mg [Concomitant]
     Dosage: OTHER QUANTITY : 0.137 MG ;?
  3. Cartia [Concomitant]
  4. ACETAMINOPHEN [Concomitant]
     Active Substance: ACETAMINOPHEN
  5. Wartarin [Concomitant]
  6. ALLOPURINOL [Concomitant]
     Active Substance: ALLOPURINOL
  7. ASPIRIN [Concomitant]
     Active Substance: ASPIRIN
  8. FAMOTIDINE [Concomitant]
     Active Substance: FAMOTIDINE
  9. isosorbide rnononitrate [Concomitant]
  10. LATANOPROST [Concomitant]
     Active Substance: LATANOPROST
     Dosage: OTHER QUANTITY : 0.005PERCENT ;?
  11. HYDROCHLOROTHIAZIDE\LOSARTAN [Concomitant]
     Active Substance: HYDROCHLOROTHIAZIDE\LOSARTAN
     Dosage: OTHER QUANTITY : 100/12.5;?
  12. Novolog u-100 [Concomitant]

REACTIONS (1)
  - Myocardial infarction [None]

NARRATIVE: CASE EVENT DATE: 20240617
